FAERS Safety Report 6829761-9 (Version None)
Quarter: 2010Q3

REPORT INFORMATION
  Report Type: 
  Country: None (occurrence: None)
  Receive Date: 20100709
  Receipt Date: 20071212
  Transmission Date: 20110219
  Serious: Yes (Other)
  Sender: FDA-Public Use
  Company Number: PFIZER INC-2007013009

PATIENT
  Sex: Female
  Weight: 88.9 kg

DRUGS (20)
  1. CHANTIX [Suspect]
     Indication: SMOKING CESSATION THERAPY
     Dates: start: 20061101
  2. LYRICA [Suspect]
  3. MORPHINE [Suspect]
     Dates: start: 20070101, end: 20070101
  4. ADVAIR DISKUS 100/50 [Concomitant]
  5. COMBIVENT [Concomitant]
  6. SPIRIVA [Concomitant]
  7. ADVIL LIQUI-GELS [Concomitant]
  8. TOPAMAX [Concomitant]
  9. CYMBALTA [Concomitant]
  10. MOBIC [Concomitant]
  11. LORAZEPAM [Concomitant]
  12. REQUIP [Concomitant]
  13. PREVACID [Concomitant]
  14. MUCINEX [Concomitant]
  15. SKELAXIN [Concomitant]
  16. ACETYLSALICYLIC ACID [Concomitant]
  17. LORTAB [Concomitant]
  18. LEXAPRO [Concomitant]
  19. OXYGEN [Concomitant]
  20. CEFDINIR [Concomitant]

REACTIONS (5)
  - ASTHENIA [None]
  - DIZZINESS [None]
  - HYPOTENSION [None]
  - TOBACCO USER [None]
  - WEIGHT INCREASED [None]
